FAERS Safety Report 16661486 (Version 1)
Quarter: 2019Q3

REPORT INFORMATION
  Report Type: Spontaneous
  Country: US (occurrence: US)
  Receive Date: 20190802
  Receipt Date: 20190802
  Transmission Date: 20191004
  Serious: Yes (Life-Threatening, Disabling, Other)
  Sender: FDA-Public Use
  Company Number: US-PFIZER INC-2019328954

PATIENT
  Age: 62 Year
  Sex: Male
  Weight: 68 kg

DRUGS (1)
  1. AMIODARONE HCL [Suspect]
     Active Substance: AMIODARONE HYDROCHLORIDE
     Indication: ATRIAL FIBRILLATION
     Dosage: 200 MG, 2X/DAY
     Route: 048
     Dates: start: 20190723, end: 20190730

REACTIONS (20)
  - Paralysis [Recovered/Resolved with Sequelae]
  - Neuropathy peripheral [Recovering/Resolving]
  - Pain in extremity [Recovered/Resolved]
  - Dyspnoea [Recovered/Resolved]
  - Hypoaesthesia [Unknown]
  - Paraesthesia [Unknown]
  - Dysphagia [Recovered/Resolved]
  - Syncope [Recovering/Resolving]
  - Cerebrovascular accident [Unknown]
  - Dysarthria [Recovered/Resolved]
  - Feeling abnormal [Recovered/Resolved]
  - Pulse absent [Recovered/Resolved]
  - Vision blurred [Recovered/Resolved]
  - Apparent death [Unknown]
  - Abdominal pain lower [Recovered/Resolved]
  - Confusional state [Recovered/Resolved]
  - Melaena [Unknown]
  - Injury [Unknown]
  - Headache [Recovered/Resolved]
  - Asthenia [Recovering/Resolving]

NARRATIVE: CASE EVENT DATE: 2019
